FAERS Safety Report 4520599-4 (Version None)
Quarter: 2004Q4

REPORT INFORMATION
  Report Type: 
  Country: None (occurrence: None)
  Receive Date: 20041203
  Receipt Date: 20041124
  Transmission Date: 20050328
  Serious: Yes (Death)
  Sender: FDA-Public Use
  Company Number: 2004-11-1063

PATIENT
  Sex: Female

DRUGS (2)
  1. TEMODAR [Suspect]
     Dosage: 75 MG/M2 QD ORAL
     Route: 048
  2. RADIATION THERAPY NO DOSE FORM [Suspect]

REACTIONS (1)
  - THROMBOCYTOPENIA [None]
